FAERS Safety Report 13405851 (Version 3)
Quarter: 2017Q3

REPORT INFORMATION
  Report Type: Other
  Country: IT (occurrence: IT)
  Receive Date: 20170405
  Receipt Date: 20170824
  Transmission Date: 20171127
  Serious: Yes (Hospitalization, Other)
  Sender: FDA-Public Use
  Company Number: IT-APOTEX-2017AP009260

PATIENT
  Age: 53 Year
  Sex: Female

DRUGS (4)
  1. QUETIAPINA DOC GENERICI COMPRESSE RIVESTITE CON FILM [Suspect]
     Active Substance: QUETIAPINE
     Indication: ANXIETY
     Dosage: 900 UNK, UNK
     Route: 065
  2. QUETIAPINA DOC GENERICI COMPRESSE RIVESTITE CON FILM [Suspect]
     Active Substance: QUETIAPINE
     Indication: DRUG USE DISORDER
     Dosage: 1800 MG, TOTAL
     Route: 048
     Dates: start: 20170301, end: 20170301
  3. QUETIAPINA DOC GENERICI COMPRESSE RIVESTITE CON FILM [Suspect]
     Active Substance: QUETIAPINE
     Indication: DEPRESSION
  4. BIPERIDENE [Suspect]
     Active Substance: BIPERIDEN
     Indication: COGNITIVE DISORDER
     Dosage: 4 MG, QD
     Route: 065

REACTIONS (1)
  - Depressed level of consciousness [Recovered/Resolved with Sequelae]

NARRATIVE: CASE EVENT DATE: 20170301
